FAERS Safety Report 8541266 (Version 4)
Quarter: 2014Q2

REPORT INFORMATION
  Report Type: Spontaneous
  Country: US (occurrence: US)
  Receive Date: 20120502
  Receipt Date: 20140512
  Transmission Date: 20141212
  Serious: No
  Sender: FDA-Public Use
  Company Number: US-PFIZER INC-2012140118

PATIENT
  Age: 69 Year
  Sex: Female
  Weight: 72.56 kg

DRUGS (7)
  1. AMLODIPINE BESILATE [Suspect]
     Dosage: UNK
  2. DAYPRO [Suspect]
     Dosage: UNK
  3. XANAX [Suspect]
     Dosage: UNK
  4. LOPID [Suspect]
     Dosage: UNK
  5. MAXZIDE [Suspect]
     Dosage: UNK
  6. HYDRALAZINE [Suspect]
     Dosage: UNK
  7. BETADINE [Suspect]
     Dosage: UNK

REACTIONS (1)
  - Drug hypersensitivity [Unknown]
